FAERS Safety Report 20980595 (Version 1)
Quarter: 2022Q2

REPORT INFORMATION
  Report Type: Spontaneous
  Country: US (occurrence: US)
  Receive Date: 20220620
  Receipt Date: 20220620
  Transmission Date: 20220720
  Serious: No
  Sender: FDA-Public Use
  Company Number: US-CURIUM-2022000219

PATIENT
  Age: 57 Year
  Sex: Male

DRUGS (10)
  1. TECHNETIUM TC-99M [Suspect]
     Active Substance: TECHNETIUM TC-99M
     Indication: Cardiac stress test
     Route: 065
     Dates: start: 20220411, end: 20220411
  2. TECHNETIUM TC-99M [Suspect]
     Active Substance: TECHNETIUM TC-99M
     Indication: Cardiac stress test
     Route: 065
     Dates: start: 20220412, end: 20220412
  3. MYOVIEW [Concomitant]
     Active Substance: TECHNETIUM TC-99M TETROFOSMIN
     Indication: Cardiac stress test
     Route: 065
     Dates: start: 20220411, end: 20220411
  4. MYOVIEW [Concomitant]
     Active Substance: TECHNETIUM TC-99M TETROFOSMIN
     Indication: Cardiac stress test
     Route: 065
     Dates: start: 20220412, end: 20220412
  5. PLAVIX [Concomitant]
     Active Substance: CLOPIDOGREL BISULFATE
     Indication: Product used for unknown indication
     Route: 065
  6. ZESTRIL [Concomitant]
     Active Substance: LISINOPRIL
     Indication: Product used for unknown indication
     Route: 065
  7. ASPIRIN [Concomitant]
     Active Substance: ASPIRIN
     Indication: Product used for unknown indication
     Route: 065
  8. LIPITOR [Concomitant]
     Active Substance: ATORVASTATIN CALCIUM
     Indication: Product used for unknown indication
     Route: 065
  9. NITROGLYCERIN [Concomitant]
     Active Substance: NITROGLYCERIN
     Indication: Product used for unknown indication
     Route: 065
  10. REGADENOSON [Concomitant]
     Active Substance: REGADENOSON
     Indication: Cardiac stress test
     Route: 065

REACTIONS (3)
  - Radioisotope scan abnormal [Recovered/Resolved]
  - Drug ineffective [Recovered/Resolved]
  - Radiation overdose [Recovered/Resolved]

NARRATIVE: CASE EVENT DATE: 20220411
